FAERS Safety Report 8948106 (Version 1)
Quarter: 2012Q4

REPORT INFORMATION
  Report Type: 
  Country: JP (occurrence: JP)
  Receive Date: 20121204
  Receipt Date: 20121204
  Transmission Date: 20130627
  Serious: Yes (Other)
  Sender: FDA-Public Use
  Company Number: JP-GLAXOSMITHKLINE-B0848863A

PATIENT

DRUGS (1)
  1. PAXIL [Suspect]
     Indication: PRODUCT USED FOR UNKNOWN INDICATION
     Route: 048

REACTIONS (19)
  - Loss of consciousness [Unknown]
  - Altered state of consciousness [Unknown]
  - Stupor [Unknown]
  - Urinary incontinence [Unknown]
  - Dreamy state [Unknown]
  - Visual impairment [Unknown]
  - Tremor [Unknown]
  - Tetany [Unknown]
  - Munchausen^s syndrome [Unknown]
  - Headache [Unknown]
  - Contusion [Unknown]
  - Mental impairment [Unknown]
  - Dizziness postural [Unknown]
  - Blood pressure increased [Unknown]
  - Vision blurred [Unknown]
  - Hypokinesia [Unknown]
  - Head discomfort [Unknown]
  - Dysstasia [Unknown]
  - Amnesia [Unknown]
